FAERS Safety Report 4763162-2 (Version None)
Quarter: 2005Q3

REPORT INFORMATION
  Report Type: 
  Country: None (occurrence: None)
  Receive Date: 20050902
  Receipt Date: 20050822
  Transmission Date: 20060218
  Serious: Yes (Death, Life-Threatening)
  Sender: FDA-Public Use
  Company Number: 2005118645

PATIENT
  Age: 77 Year
  Sex: Female

DRUGS (4)
  1. BEXTRA [Suspect]
     Indication: RHEUMATOID ARTHRITIS
     Dosage: 10 MG (10 MG, 1 IN 1 D), ORAL
     Route: 048
     Dates: start: 20050103
  2. FERRO SANOL (AMINOACETIC ACID, FERROUS SULFATE) [Concomitant]
  3. OEMPRAZOLE (OMEPRAZOLE) [Concomitant]
  4. DICLOFENAC SODIUM [Concomitant]

REACTIONS (3)
  - AORTIC RUPTURE [None]
  - DUODENAL ULCER [None]
  - HAEMORRHAGE [None]
